FAERS Safety Report 8389925-2 (Version None)
Quarter: 2012Q2

REPORT INFORMATION
  Report Type: 
  Country: None (occurrence: None)
  Receive Date: 20120516
  Receipt Date: 20120511
  Transmission Date: 20120825
  Serious: Yes (Hospitalization)
  Sender: FDA-Public Use
  Company Number: 2012SP025394

PATIENT
  Age: 35 Year
  Sex: Female

DRUGS (1)
  1. NUVARING [Suspect]
     Indication: CONTRACEPTION
     Dates: start: 20070701

REACTIONS (4)
  - VASCULAR PSEUDOANEURYSM [None]
  - POST PROCEDURAL COMPLICATION [None]
  - PAIN IN EXTREMITY [None]
  - THROMBOSIS [None]
